FAERS Safety Report 6321542-8 (Version None)
Quarter: 2009Q3

REPORT INFORMATION
  Report Type: 
  Country: None (occurrence: None)
  Receive Date: 20090824
  Receipt Date: 20070503
  Transmission Date: 20100115
  Serious: Yes (Other)
  Sender: FDA-Public Use
  Company Number: US-ASTRAZENECA-2006UW21469

PATIENT
  Age: 19365 Day
  Sex: Female
  Weight: 89.8 kg

DRUGS (20)
  1. SEROQUEL [Suspect]
     Indication: MENTAL DISORDER
     Dosage: 100 MG - 300 MG
     Route: 048
     Dates: start: 20020914
  2. SEROQUEL [Suspect]
     Dosage: 100MG 3XHS
     Route: 048
  3. TRAZODONE HCL [Concomitant]
     Dosage: 100MG 3XHS
     Route: 048
  4. TRAZODONE HCL [Concomitant]
     Dosage: 200 MG - 300 MG
     Dates: start: 20020914
  5. PAXIL [Concomitant]
     Indication: DEPRESSION
     Dates: start: 19980723
  6. GLUCOPHAGE [Concomitant]
     Dates: start: 19980723
  7. NASAREL [Concomitant]
     Indication: CHRONIC SINUSITIS
     Dosage: TWO PUFFS DAILY
     Dates: start: 19980723
  8. FLEXERIL [Concomitant]
     Dosage: 10 THREE TIMES A DAY
     Dates: start: 19980926
  9. ASPIRIN [Concomitant]
     Dates: start: 20020914
  10. PLAVIX [Concomitant]
     Dates: start: 20020914
  11. LOPRESSOR [Concomitant]
     Dates: start: 20020914
  12. ALTACE [Concomitant]
     Dates: start: 20020914
  13. ZOCOR [Concomitant]
     Dates: start: 20020914
  14. AVANDIA [Concomitant]
     Dates: start: 20020914
  15. NITROGLYCERIN [Concomitant]
     Indication: CHEST PAIN
     Dosage: 0.4 MG AS NEEDED
     Dates: start: 20020914
  16. PREMARIN [Concomitant]
     Dates: start: 20020914
  17. FLUOXETINE [Concomitant]
     Dates: start: 20020914
  18. RANITIDINE [Concomitant]
     Dates: start: 20020914
  19. ISOSORBIDE DINITRATE [Concomitant]
     Dates: start: 20061017
  20. ZOLOFT [Concomitant]
     Dates: start: 20061017

REACTIONS (4)
  - DIABETES MELLITUS [None]
  - DIABETIC NEUROPATHY [None]
  - NEUROPATHY PERIPHERAL [None]
  - POOR PERIPHERAL CIRCULATION [None]
